FAERS Safety Report 17484331 (Version 1)
Quarter: 2020Q1

REPORT INFORMATION
  Report Type: Spontaneous
  Country: GB (occurrence: GB)
  Receive Date: 20200302
  Receipt Date: 20200302
  Transmission Date: 20200409
  Serious: Yes (Hospitalization)
  Sender: FDA-Public Use
  Company Number: GB-PFIZER INC-2020085632

PATIENT
  Age: 56 Year
  Sex: Male
  Weight: 92.1 kg

DRUGS (4)
  1. HYDROCORTISONE. [Concomitant]
     Active Substance: HYDROCORTISONE
     Indication: HYPOPITUITARISM
     Dosage: 40 MG, 1X/DAY
     Route: 048
     Dates: start: 201908
  2. LEVOTHYROXINE. [Concomitant]
     Active Substance: LEVOTHYROXINE
     Indication: HYPOPITUITARISM
     Dosage: 100 UG, UNK
     Route: 048
     Dates: start: 201908
  3. TESTOGEL [Concomitant]
     Active Substance: TESTOSTERONE
     Indication: HYPOPITUITARISM
     Dosage: UNK
     Route: 061
     Dates: start: 201908
  4. SOMATROPIN. [Suspect]
     Active Substance: SOMATROPIN
     Indication: RATHKE^S CLEFT CYST
     Dosage: 0.2 MG, (FIRST DOSE)
     Route: 058
     Dates: start: 20200124, end: 20200124

REACTIONS (2)
  - Vomiting [Recovering/Resolving]
  - Pyrexia [Recovering/Resolving]

NARRATIVE: CASE EVENT DATE: 20200124
